FAERS Safety Report 5454093-3 (Version None)
Quarter: 2007Q3

REPORT INFORMATION
  Report Type: 
  Country: None (occurrence: None)
  Receive Date: 20070917
  Receipt Date: 20070228
  Transmission Date: 20080115
  Serious: No
  Sender: FDA-Public Use
  Company Number: US-ASTRAZENECA-2006UW09111

PATIENT
  Age: 614 Month
  Sex: Female
  Weight: 118.2 kg

DRUGS (3)
  1. SEROQUEL [Suspect]
     Indication: BIPOLAR DISORDER
     Route: 048
     Dates: start: 20000612, end: 20050510
  2. SEROQUEL [Suspect]
     Indication: DEPRESSION
     Route: 048
     Dates: start: 20000612, end: 20050510
  3. SEROQUEL [Suspect]
     Indication: SLEEP DISORDER
     Route: 048
     Dates: start: 20000612, end: 20050510

REACTIONS (5)
  - CHILLS [None]
  - DIZZINESS [None]
  - LIVER DISORDER [None]
  - PYREXIA [None]
  - TYPE 2 DIABETES MELLITUS [None]
